FAERS Safety Report 25968601 (Version 2)
Quarter: 2025Q4

REPORT INFORMATION
  Report Type: Spontaneous
  Country: EU (occurrence: EU)
  Receive Date: 20251028
  Receipt Date: 20251105
  Transmission Date: 20260118
  Serious: Yes (Other)
  Sender: LEO PHARM
  Company Number: None

PATIENT
  Age: 20 Year
  Sex: Female

DRUGS (4)
  1. ADBRY [Suspect]
     Active Substance: TRALOKINUMAB-LDRM
     Indication: Product used for unknown indication
     Dates: start: 202304, end: 202307
  2. ABROCITINIB [Concomitant]
     Active Substance: ABROCITINIB
     Indication: Product used for unknown indication
     Dates: start: 202304
  3. DUPILUMAB [Concomitant]
     Active Substance: DUPILUMAB
     Indication: Product used for unknown indication
     Dates: start: 20230706
  4. UPADACITINIB [Suspect]
     Active Substance: UPADACITINIB
     Indication: Dermatitis atopic
     Route: 048
     Dates: start: 202209, end: 202304

REACTIONS (10)
  - Muscle tightness [Unknown]
  - Drug ineffective [Unknown]
  - Skin irritation [Recovering/Resolving]
  - Pruritus [Unknown]
  - Ankle operation [Unknown]
  - Conjunctivitis allergic [Recovering/Resolving]
  - Conjunctivitis [Unknown]
  - Infection [Unknown]
  - Skin odour abnormal [Unknown]
  - Dry skin [Recovering/Resolving]

NARRATIVE: CASE EVENT DATE: 20230401
